FAERS Safety Report 7664807-X (Version None)
Quarter: 2011Q3

REPORT INFORMATION
  Report Type: 
  Country: None (occurrence: None)
  Receive Date: 20110806
  Receipt Date: 20110126
  Transmission Date: 20111222
  Serious: No
  Sender: FDA-Public Use
  Company Number: US-ABBOTT-11P-163-0700871-00

PATIENT
  Sex: Female
  Weight: 90.8 kg

DRUGS (6)
  1. ASPIRIN [Concomitant]
     Indication: PRODUCT USED FOR UNKNOWN INDICATION
     Route: 048
  2. LOVAZA [Concomitant]
     Indication: PRODUCT USED FOR UNKNOWN INDICATION
     Route: 048
  3. HYDROCHLOROTHIAZIDE [Concomitant]
     Indication: PRODUCT USED FOR UNKNOWN INDICATION
     Route: 048
  4. MULTI-VITAMINS [Concomitant]
     Indication: PRODUCT USED FOR UNKNOWN INDICATION
     Route: 048
  5. FEXOFENADINE [Concomitant]
     Indication: PRODUCT USED FOR UNKNOWN INDICATION
     Route: 048
  6. NIASPAN [Suspect]
     Indication: DYSLIPIDAEMIA
     Dosage: AT BEDTIME
     Route: 048
     Dates: start: 20100901

REACTIONS (7)
  - ABDOMINAL DISCOMFORT [None]
  - NASAL CONGESTION [None]
  - DYSPEPSIA [None]
  - INCREASED UPPER AIRWAY SECRETION [None]
  - PRURITUS [None]
  - OROPHARYNGEAL PAIN [None]
  - ABDOMINAL DISTENSION [None]
